FAERS Safety Report 5361183-2 (Version None)
Quarter: 2007Q2

REPORT INFORMATION
  Report Type: 
  Country: None (occurrence: None)
  Receive Date: 20070614
  Receipt Date: 20070530
  Transmission Date: 20071010
  Serious: Yes (Death)
  Sender: FDA-Public Use
  Company Number: S07-CAN-02490-01

PATIENT
  Age: 44 Year
  Sex: Male

DRUGS (2)
  1. ESCITALOPRAM [Suspect]
     Dosage: 10 MG QD PO
     Route: 048
  2. IMOVANE (ZOPICLONE) [Concomitant]

REACTIONS (4)
  - AGITATION [None]
  - COMPLETED SUICIDE [None]
  - IMPULSIVE BEHAVIOUR [None]
  - INSOMNIA [None]
